FAERS Safety Report 6821864-8 (Version None)
Quarter: 2010Q3

REPORT INFORMATION
  Report Type: 
  Country: None (occurrence: None)
  Receive Date: 20100708
  Receipt Date: 20100628
  Transmission Date: 20110219
  Serious: No
  Sender: FDA-Public Use
  Company Number: US-BIOGENIDEC-2010BI018718

PATIENT
  Age: 30 Year
  Sex: Female

DRUGS (1)
  1. TYSABRI [Suspect]
     Indication: MULTIPLE SCLEROSIS
     Route: 042
     Dates: start: 20091123

REACTIONS (7)
  - CHEST PAIN [None]
  - DYSPNOEA [None]
  - MENTAL IMPAIRMENT [None]
  - MOBILITY DECREASED [None]
  - NAUSEA [None]
  - OPTIC NERVE DISORDER [None]
  - SPEECH DISORDER [None]
